FAERS Safety Report 11146679 (Version 3)
Quarter: 2015Q4

REPORT INFORMATION
  Report Type: Spontaneous
  Country: FR (occurrence: FR)
  Receive Date: 20150528
  Receipt Date: 20151124
  Transmission Date: 20160304
  Serious: Yes (Congenital Anomaly, Other)
  Sender: FDA-Public Use
  Company Number: FR-ABBVIE-15P-056-1398953-00

PATIENT
  Sex: Male

DRUGS (1)
  1. DEPAKINE [Suspect]
     Active Substance: VALPROATE SODIUM
     Indication: MATERNAL EXPOSURE TIMING UNSPECIFIED
     Route: 064

REACTIONS (29)
  - Neonatal respiratory failure [Recovered/Resolved]
  - Autism spectrum disorder [Recovering/Resolving]
  - Disturbance in attention [Unknown]
  - Premature baby [Unknown]
  - Communication disorder [Recovering/Resolving]
  - Anger [Unknown]
  - Hyperkinesia [Not Recovered/Not Resolved]
  - Rib deformity [Unknown]
  - Developmental delay [Recovering/Resolving]
  - Anaemia [Recovered/Resolved with Sequelae]
  - Dysmorphism [Unknown]
  - Mental impairment [Unknown]
  - Plagiocephaly [Not Recovered/Not Resolved]
  - Abnormal behaviour [Recovering/Resolving]
  - Respiratory distress [Recovered/Resolved with Sequelae]
  - Congenital hand malformation [Recovered/Resolved with Sequelae]
  - Psychomotor retardation [Recovering/Resolving]
  - Dyspraxia [Unknown]
  - Hypotonia [Unknown]
  - Growth retardation [Unknown]
  - Affect lability [Not Recovered/Not Resolved]
  - Foetal growth restriction [Unknown]
  - Feeling abnormal [Not Recovered/Not Resolved]
  - Otitis media [Unknown]
  - Astigmatism [Unknown]
  - Foetal exposure during pregnancy [Unknown]
  - Developmental delay [Unknown]
  - Attention deficit/hyperactivity disorder [Unknown]
  - Dissociation [Not Recovered/Not Resolved]

NARRATIVE: CASE EVENT DATE: 20081124
